FAERS Safety Report 4542827-1 (Version None)
Quarter: 2004Q4

REPORT INFORMATION
  Report Type: 
  Country: None (occurrence: None)
  Receive Date: 20041229
  Receipt Date: 20041220
  Transmission Date: 20050328
  Serious: No
  Sender: FDA-Public Use
  Company Number: 2004AC01068

PATIENT
  Age: 91 Year
  Sex: Female
  Weight: 52 kg

DRUGS (12)
  1. BUPIVACAINE [Suspect]
     Indication: ANALGESIC EFFECT
     Dosage: 4 ML ED
     Route: 008
  2. BUPIVACAINE [Suspect]
     Indication: ANALGESIC EFFECT
     Dosage: 6 ML /HR ED
     Route: 008
  3. HYDROMORPHONE [Suspect]
     Indication: ANALGESIC EFFECT
     Dosage: 0.4 MG ED
     Route: 008
  4. HYDROMORPHONE [Suspect]
     Indication: ANALGESIC EFFECT
     Dosage: 5 UG/ML ED
     Route: 008
  5. HEPARIN [Concomitant]
  6. RANITIDINE [Concomitant]
  7. RALOXIFENE HCL [Concomitant]
  8. VERAPAMIL [Concomitant]
  9. VITAMIN B-12 [Concomitant]
  10. IRON SUPPLEMENTS [Concomitant]
  11. LATANOPROST [Concomitant]
  12. TIMOLOL MALEATE [Concomitant]

REACTIONS (9)
  - ANAESTHETIC COMPLICATION [None]
  - AREFLEXIA [None]
  - ASTHENIA [None]
  - CEREBROSPINAL FLUID LEAKAGE [None]
  - DIPLEGIA [None]
  - HYPOAESTHESIA [None]
  - MENINGEAL NEOPLASM [None]
  - NEUROLOGICAL SYMPTOM [None]
  - SENSORY DISTURBANCE [None]
